FAERS Safety Report 22795276 (Version 9)
Quarter: 2023Q4

REPORT INFORMATION
  Report Type: Spontaneous
  Country: BR (occurrence: BR)
  Receive Date: 20230807
  Receipt Date: 20231009
  Transmission Date: 20240110
  Serious: Yes (Other)
  Sender: FDA-Public Use
  Company Number: BR-002147023-NVSC2023BR171460

PATIENT
  Age: 71 Year
  Sex: Female
  Weight: 69 kg

DRUGS (7)
  1. FEMARA [Suspect]
     Active Substance: LETROZOLE
     Indication: Breast neoplasm
     Dosage: UNK (FOR 10 MONTHS)
     Route: 048
  2. FEMARA [Suspect]
     Active Substance: LETROZOLE
     Indication: Mastectomy
     Dosage: 2.5 MG
     Route: 048
  3. FEMARA [Suspect]
     Active Substance: LETROZOLE
     Indication: Lung opacity
     Dosage: 1 DOSAGE FORM, QD (28 TABLETS)
     Route: 048
     Dates: start: 202210, end: 20230803
  4. ROSUVASTATIN [Suspect]
     Active Substance: ROSUVASTATIN
     Indication: Product used for unknown indication
     Dosage: UNK
     Route: 065
  5. LISINOPRIL [Concomitant]
     Active Substance: LISINOPRIL
     Indication: Hypertension
     Dosage: UNK
     Route: 065
  6. EZETIB [Concomitant]
     Indication: Hypercholesterolaemia
     Dosage: 10 MG, QD (HAD BEEN USING FOR YEARS)
     Route: 048
  7. EZETIB [Concomitant]
     Dosage: 10 MG
     Route: 048

REACTIONS (26)
  - Organising pneumonia [Unknown]
  - C-reactive protein increased [Unknown]
  - Blood cholesterol increased [Unknown]
  - Pneumonitis [Recovering/Resolving]
  - Pulmonary mass [Unknown]
  - Coronary artery disease [Unknown]
  - Diverticulum intestinal [Unknown]
  - Arteriosclerosis [Unknown]
  - Degenerative bone disease [Unknown]
  - Blood alkaline phosphatase increased [Unknown]
  - Low density lipoprotein increased [Unknown]
  - High density lipoprotein increased [Unknown]
  - Kyphosis [Unknown]
  - Breast cyst [Unknown]
  - Inguinal hernia [Unknown]
  - Exostosis [Unknown]
  - Skin lesion [Unknown]
  - Atelectasis [Unknown]
  - Goitre [Unknown]
  - Glycosylated haemoglobin increased [Unknown]
  - Lung disorder [Unknown]
  - Pyuria [Unknown]
  - Vitamin D decreased [Unknown]
  - Hiatus hernia [Unknown]
  - Umbilical hernia [Unknown]
  - Thyroid mass [Unknown]

NARRATIVE: CASE EVENT DATE: 20230727
